FAERS Safety Report 5968296-2 (Version None)
Quarter: 2008Q4

REPORT INFORMATION
  Report Type: 
  Country: None (occurrence: None)
  Receive Date: 20081121
  Receipt Date: 20081121
  Transmission Date: 20090506
  Serious: Yes (Disabling, Other)
  Sender: FDA-Public Use
  Company Number: None

PATIENT
  Age: 23 Year
  Sex: Female
  Weight: 63.5036 kg

DRUGS (1)
  1. DEPO-PROVERA [Suspect]
     Indication: CONTRACEPTION
     Dosage: 1 EVERY 3 MONTHS INJ
     Dates: start: 20010801, end: 20081027

REACTIONS (2)
  - ABORTION SPONTANEOUS [None]
  - HAIR GROWTH ABNORMAL [None]
